FAERS Safety Report 19508947 (Version 2)
Quarter: 2021Q3

REPORT INFORMATION
  Report Type: Spontaneous
  Country: US (occurrence: US)
  Receive Date: 20210709
  Receipt Date: 20210715
  Transmission Date: 20211014
  Serious: Yes (Other)
  Sender: FDA-Public Use
  Company Number: US-BEH-2021133623

PATIENT
  Sex: Male
  Weight: 42.63 kg

DRUGS (1)
  1. HIZENTRA [Suspect]
     Active Substance: HUMAN IMMUNOGLOBULIN G
     Indication: IMMUNODEFICIENCY COMMON VARIABLE
     Dosage: 5 GRAM, QW
     Route: 058
     Dates: start: 20200829

REACTIONS (6)
  - Irritable bowel syndrome [Unknown]
  - Weight increased [Unknown]
  - Infusion site pain [Unknown]
  - Fatigue [Unknown]
  - Middle ear effusion [Unknown]
  - Rhinorrhoea [Unknown]
